FAERS Safety Report 4962861-7 (Version None)
Quarter: 2006Q2

REPORT INFORMATION
  Report Type: 
  Country: None (occurrence: None)
  Receive Date: 20060403
  Receipt Date: 20060403
  Transmission Date: 20061013
  Serious: Yes (Hospitalization)
  Sender: FDA-Public Use
  Company Number: None

PATIENT
  Age: 58 Year
  Sex: Male
  Weight: 146.64 kg

DRUGS (1)
  1. VANCOMYCIN [Suspect]
     Indication: CELLULITIS
     Dosage: 1G Q12H IV
     Route: 042
     Dates: start: 20060126, end: 20060129

REACTIONS (4)
  - ANXIETY [None]
  - CHEST DISCOMFORT [None]
  - INFUSION RELATED REACTION [None]
  - RED MAN SYNDROME [None]
